FAERS Safety Report 8816647 (Version 1)
Quarter: 2012Q4

REPORT INFORMATION
  Report Type: Spontaneous
  Country: NL (occurrence: None)
  Receive Date: 20120928
  Receipt Date: 20120928
  Transmission Date: 20130627
  Serious: Yes (Death)
  Sender: FDA-Public Use
  Company Number: 2012-4403

PATIENT
  Age: 55 Year
  Sex: Male

DRUGS (1)
  1. SOMATULINE DEPOT [Suspect]
     Indication: NEUROENDOCRINE TUMOR
     Dosage: 120 mg (120 mg, 1 in 28 D), Subcutaneous
     Route: 058
     Dates: start: 20090226, end: 20120831

REACTIONS (1)
  - Death [None]
